FAERS Safety Report 20911839 (Version 1)
Quarter: 2022Q2

REPORT INFORMATION
  Report Type: Spontaneous
  Country: US (occurrence: None)
  Receive Date: 20220603
  Receipt Date: 20220603
  Transmission Date: 20220721
  Serious: Yes (Other)
  Sender: FDA-Public Use
  Company Number: None

PATIENT
  Age: 78 Year
  Sex: Male
  Weight: 69.3 kg

DRUGS (12)
  1. PAXLOVID [Suspect]
     Active Substance: NIRMATRELVIR\RITONAVIR
     Indication: COVID-19
     Dosage: OTHER QUANTITY : 30 CAPSULE(S);?FREQUENCY : TWICE A DAY;?
     Route: 048
     Dates: start: 20220526, end: 20220526
  2. PAXLOVID [Suspect]
     Active Substance: NIRMATRELVIR\RITONAVIR
     Indication: Infection in an immunocompromised host
  3. DEVICE [Concomitant]
     Active Substance: DEVICE
  4. CARBIDOPA\LEVODOPA [Concomitant]
     Active Substance: CARBIDOPA\LEVODOPA
  5. BUPROPION [Concomitant]
     Active Substance: BUPROPION
  6. NEXIUM [Concomitant]
     Active Substance: ESOMEPRAZOLE MAGNESIUM
  7. Amplodipine [Concomitant]
  8. ADVIL [Concomitant]
     Active Substance: IBUPROFEN
  9. VITAMIN B12 [Concomitant]
     Active Substance: CYANOCOBALAMIN
  10. ASPIRIN [Concomitant]
     Active Substance: ASPIRIN
  11. MELATONIN [Concomitant]
     Active Substance: MELATONIN
  12. CANNABIDIOL\HERBALS [Concomitant]
     Active Substance: CANNABIDIOL\HERBALS

REACTIONS (2)
  - COVID-19 [None]
  - Rebound effect [None]

NARRATIVE: CASE EVENT DATE: 20220529
